FAERS Safety Report 13801691 (Version 2)
Quarter: 2017Q3

REPORT INFORMATION
  Report Type: Spontaneous
  Country: GB (occurrence: GB)
  Receive Date: 20170727
  Receipt Date: 20170811
  Transmission Date: 20171127
  Serious: Yes (Life-Threatening, Hospitalization, Disabling, Other)
  Sender: FDA-Public Use
  Company Number: PHFR2017GB006032

PATIENT

DRUGS (3)
  1. SERTRALINE [Suspect]
     Active Substance: SERTRALINE HYDROCHLORIDE
     Indication: ANXIETY
     Dosage: 1.5
     Route: 048
     Dates: start: 20170503, end: 20170504
  2. DIAZEPAM. [Suspect]
     Active Substance: DIAZEPAM
     Indication: ANXIETY
     Dosage: 5 MG,
     Route: 048
     Dates: start: 20170504
  3. LORAZEPAM. [Suspect]
     Active Substance: LORAZEPAM
     Indication: ANXIETY
     Route: 048
     Dates: start: 20170515, end: 20170531

REACTIONS (19)
  - Suicide attempt [Recovered/Resolved with Sequelae]
  - Fatigue [Not Recovered/Not Resolved]
  - Intentional self-injury [Recovering/Resolving]
  - Insomnia [Not Recovered/Not Resolved]
  - Blepharospasm [Not Recovered/Not Resolved]
  - Decreased interest [Recovering/Resolving]
  - Catatonia [Recovered/Resolved]
  - Diarrhoea [Recovered/Resolved]
  - Psychiatric symptom [Recovering/Resolving]
  - Apathy [Recovering/Resolving]
  - Restlessness [Recovering/Resolving]
  - Tremor [Not Recovered/Not Resolved]
  - Cyanosis [Recovered/Resolved]
  - Akathisia [Not Recovered/Not Resolved]
  - Amnesia [Recovered/Resolved with Sequelae]
  - Vomiting [Recovered/Resolved]
  - Irritability [Not Recovered/Not Resolved]
  - Depression suicidal [Recovering/Resolving]
  - Muscle twitching [Not Recovered/Not Resolved]

NARRATIVE: CASE EVENT DATE: 20170503
